FAERS Safety Report 9610272 (Version 1)
Quarter: 2013Q4

REPORT INFORMATION
  Report Type: Spontaneous
  Country: US (occurrence: US)
  Receive Date: 20131009
  Receipt Date: 20131009
  Transmission Date: 20140711
  Serious: Yes (Hospitalization)
  Sender: FDA-Public Use
  Company Number: US-NAPPMUNDI-USA-2012-0096795

PATIENT
  Sex: Female

DRUGS (4)
  1. BUTRANS [Suspect]
     Indication: PAIN
     Dosage: 10 MCG/HR, DAILY
     Route: 062
  2. BUTRANS [Suspect]
     Dosage: 20 MCG/HR, DAILY
     Route: 062
  3. BUTRANS [Suspect]
     Dosage: 10 MCG/HR, DAILY
     Route: 062
  4. BUTRANS [Suspect]
     Dosage: 15 MCG/HR, DAILY
     Route: 062

REACTIONS (5)
  - Chest pain [Unknown]
  - Liver function test abnormal [Recovered/Resolved]
  - Pruritus [Recovered/Resolved]
  - Skin irritation [Unknown]
  - Extra dose administered [Unknown]
